FAERS Safety Report 9641007 (Version 1)
Quarter: 2013Q4

REPORT INFORMATION
  Report Type: Report from Study
  Country: US (occurrence: US)
  Receive Date: 20131023
  Receipt Date: 20131023
  Transmission Date: 20140711
  Serious: No
  Sender: FDA-Public Use
  Company Number: US-ABBVIE-12P-163-1017705-00

PATIENT
  Age: 27 Year
  Sex: Female
  Weight: 49.94 kg

DRUGS (3)
  1. LUPRON DEPOT [Suspect]
     Indication: ENDOMETRIOSIS
     Route: 030
     Dates: start: 20121101, end: 20121129
  2. LUPRON DEPOT [Suspect]
     Indication: ENDOMETRIOSIS
     Route: 030
     Dates: start: 20121129
  3. ADDERALL [Concomitant]
     Indication: PRODUCT USED FOR UNKNOWN INDICATION
     Dosage: 20 MG DAILY
     Route: 048

REACTIONS (7)
  - Memory impairment [Unknown]
  - Hot flush [Unknown]
  - Headache [Unknown]
  - Muscle spasms [Unknown]
  - Abdominal pain [Unknown]
  - Blood urine present [Unknown]
  - Cystitis [Unknown]
